FAERS Safety Report 19441706 (Version 1)
Quarter: 2021Q2

REPORT INFORMATION
  Report Type: Spontaneous
  Country: DE (occurrence: DE)
  Receive Date: 20210621
  Receipt Date: 20210621
  Transmission Date: 20210717
  Serious: Yes (Death, Hospitalization, Other)
  Sender: FDA-Public Use
  Company Number: DE-PBT-000445

PATIENT

DRUGS (4)
  1. TACROLIMUS. [Suspect]
     Active Substance: TACROLIMUS
     Indication: IMMUNOSUPPRESSANT DRUG THERAPY
     Dosage: UNK
     Route: 065
     Dates: start: 2004, end: 2019
  2. METHYLPREDNISOLONE. [Suspect]
     Active Substance: METHYLPREDNISOLONE
     Indication: IMMUNOSUPPRESSANT DRUG THERAPY
     Dosage: 2 MG, QD
     Route: 065
     Dates: start: 2019, end: 202102
  3. MYCOPHENOLATE MOFETIL. [Suspect]
     Active Substance: MYCOPHENOLATE MOFETIL
     Indication: IMMUNOSUPPRESSANT DRUG THERAPY
     Dosage: UNK
     Route: 065
     Dates: start: 2004, end: 2019
  4. METHYLPREDNISOLONE. [Suspect]
     Active Substance: METHYLPREDNISOLONE
     Indication: IMMUNOSUPPRESSANT DRUG THERAPY
     Dosage: 2 MG, QD
     Route: 065
     Dates: start: 2004, end: 2019

REACTIONS (16)
  - General physical health deterioration [Fatal]
  - Metastases to pleura [Recovering/Resolving]
  - Lung infiltration malignant [Recovering/Resolving]
  - Skin squamous cell carcinoma metastatic [Recovering/Resolving]
  - Metastases to bone [Recovering/Resolving]
  - Limb mass [Recovering/Resolving]
  - Sepsis [Fatal]
  - Axillary mass [Recovering/Resolving]
  - Metastases to lymph nodes [Recovering/Resolving]
  - Disease progression [Recovering/Resolving]
  - Metastases to spine [Recovering/Resolving]
  - Pneumonitis [Fatal]
  - Skin squamous cell carcinoma recurrent [Recovering/Resolving]
  - Multiple organ dysfunction syndrome [Fatal]
  - Respiratory failure [Fatal]
  - Ulcer [Recovering/Resolving]

NARRATIVE: CASE EVENT DATE: 2021
